FAERS Safety Report 9372143 (Version 2)
Quarter: 2013Q3

REPORT INFORMATION
  Report Type: Spontaneous
  Country: AR (occurrence: AR)
  Receive Date: 20130627
  Receipt Date: 20130801
  Transmission Date: 20140515
  Serious: Yes (Disabling)
  Sender: FDA-Public Use
  Company Number: AR-JNJFOC-20130613101

PATIENT
  Age: 58 Year
  Sex: Female

DRUGS (3)
  1. SIMPONI [Suspect]
     Indication: ANKYLOSING SPONDYLITIS
     Route: 058
     Dates: start: 20130621
  2. SIMPONI [Suspect]
     Indication: ANKYLOSING SPONDYLITIS
     Route: 058
     Dates: start: 20130721
  3. SIMPONI [Suspect]
     Indication: ANKYLOSING SPONDYLITIS
     Route: 058
     Dates: start: 2006

REACTIONS (3)
  - Fatigue [Recovered/Resolved]
  - Drug dose omission [Recovered/Resolved]
  - Pain [Recovered/Resolved]
